FAERS Safety Report 9202034 (Version 1)
Quarter: 2013Q2

REPORT INFORMATION
  Report Type: Spontaneous
  Country: US (occurrence: US)
  Receive Date: 20130401
  Receipt Date: 20130401
  Transmission Date: 20140414
  Serious: Yes (Hospitalization)
  Sender: FDA-Public Use
  Company Number: US-BAYER-2013-037722

PATIENT
  Age: 50 Year
  Sex: Female

DRUGS (5)
  1. YAZ [Suspect]
  2. BENICAR [Concomitant]
  3. HYDROCHLOROTHIAZID [Concomitant]
  4. PEPCID [Concomitant]
  5. ANTIHYPERTENSIVES [Concomitant]

REACTIONS (2)
  - Deep vein thrombosis [Recovered/Resolved]
  - Pulmonary embolism [Recovered/Resolved]
